FAERS Safety Report 10218289 (Version 1)
Quarter: 2014Q2

REPORT INFORMATION
  Report Type: Spontaneous
  Country: US (occurrence: None)
  Receive Date: 20140604
  Receipt Date: 20140604
  Transmission Date: 20141212
  Serious: No
  Sender: FDA-Public Use
  Company Number: None

PATIENT
  Age: 60 Year
  Sex: Female

DRUGS (1)
  1. RIZATRIPTAN [Suspect]
     Indication: MIGRAINE
     Dosage: DISSOLOVE 1 TABLET ON TONGUE DAILY AS NEEDED FOR MIGRAINE, REPEAT DOSE EVERY 2 HOURS UP TO A MAXIMUM OF
     Route: 002

REACTIONS (2)
  - Product odour abnormal [None]
  - Product taste abnormal [None]
